FAERS Safety Report 25150011 (Version 4)
Quarter: 2025Q2

REPORT INFORMATION
  Report Type: Spontaneous
  Country: US (occurrence: US)
  Receive Date: 20250402
  Receipt Date: 20250506
  Transmission Date: 20250717
  Serious: Yes (Hospitalization, Other)
  Sender: PFIZER
  Company Number: US-PFIZER INC-PV202500038091

PATIENT
  Age: 54 Year
  Sex: Male

DRUGS (4)
  1. CIBINQO [Suspect]
     Active Substance: ABROCITINIB
     Indication: Dermatitis atopic
     Route: 048
     Dates: end: 20250325
  2. CIBINQO [Suspect]
     Active Substance: ABROCITINIB
     Dosage: TAKE 1 TABLET BY MOUTH DAILY
     Route: 048
     Dates: start: 20240903
  3. CIBINQO [Suspect]
     Active Substance: ABROCITINIB
  4. CIBINQO [Suspect]
     Active Substance: ABROCITINIB
     Dosage: 200MG TAKE ONE TABLET BY MOUTH DAILY
     Route: 048

REACTIONS (3)
  - Asthma [Unknown]
  - Intentional product use issue [Unknown]
  - Condition aggravated [Unknown]
